FAERS Safety Report 15485208 (Version 1)
Quarter: 2018Q4

REPORT INFORMATION
  Report Type: Spontaneous
  Country: US (occurrence: US)
  Receive Date: 20181010
  Receipt Date: 20181010
  Transmission Date: 20190205
  Serious: No
  Sender: FDA-Public Use
  Company Number: US-ROCHE-2004168

PATIENT
  Age: 72 Year
  Sex: Male
  Weight: 99.43 kg

DRUGS (2)
  1. ZELBORAF [Suspect]
     Active Substance: VEMURAFENIB
     Dosage: 3 PILLS A DAY ;ONGOING: NO
     Route: 065
  2. ZELBORAF [Suspect]
     Active Substance: VEMURAFENIB
     Indication: COLON CANCER
     Dosage: 6-8 PILLS/DAY ;ONGOING: NO
     Route: 065
     Dates: start: 201708

REACTIONS (2)
  - Erythema [Not Recovered/Not Resolved]
  - Rash macular [Not Recovered/Not Resolved]

NARRATIVE: CASE EVENT DATE: 201708
